FAERS Safety Report 4636067-5 (Version None)
Quarter: 2005Q2

REPORT INFORMATION
  Report Type: 
  Country: None (occurrence: None)
  Receive Date: 20050415
  Receipt Date: 20050404
  Transmission Date: 20051028
  Serious: Yes (Death, Hospitalization)
  Sender: FDA-Public Use
  Company Number: US-BRISTOL-MYERS SQUIBB COMPANY-12926267

PATIENT
  Age: 74 Year
  Sex: Female

DRUGS (1)
  1. SERZONE [Suspect]
     Dates: start: 19981110, end: 20000816

REACTIONS (5)
  - BLOOD UREA INCREASED [None]
  - DEATH [None]
  - HEPATOCELLULAR DAMAGE [None]
  - JAUNDICE [None]
  - WEIGHT DECREASED [None]
